FAERS Safety Report 7220010-9 (Version None)
Quarter: 2011Q1

REPORT INFORMATION
  Report Type: 
  Country: None (occurrence: None)
  Receive Date: 20110111
  Receipt Date: 20091102
  Transmission Date: 20110831
  Serious: No
  Sender: FDA-Public Use
  Company Number: US-PFIZER INC-2009292458

PATIENT
  Sex: Female

DRUGS (2)
  1. ATENOLOL [Suspect]
     Dosage: UNK
     Route: 048
     Dates: start: 20091001
  2. PREMARIN [Suspect]
     Indication: HORMONE REPLACEMENT THERAPY
     Dosage: 0.3MG/DAY

REACTIONS (1)
  - HOT FLUSH [None]
